FAERS Safety Report 19750254 (Version 1)
Quarter: 2021Q3

REPORT INFORMATION
  Report Type: Spontaneous
  Country: US (occurrence: US)
  Receive Date: 20210826
  Receipt Date: 20210826
  Transmission Date: 20211014
  Serious: No
  Sender: FDA-Public Use
  Company Number: US-UPSHER-SMITH LABORATORIES, LLC-2020USL00620

PATIENT
  Sex: Female

DRUGS (2)
  1. EXEMESTANE. [Suspect]
     Active Substance: EXEMESTANE
     Indication: INTRADUCTAL PROLIFERATIVE BREAST LESION
     Dosage: 25 MG, 1X/DAY
     Dates: start: 202003, end: 20200902
  2. EXEMESTANE. [Suspect]
     Active Substance: EXEMESTANE
     Indication: HORMONE RECEPTOR POSITIVE BREAST CANCER
     Dosage: 25 MG, EVERY OTHER DAY
     Dates: start: 20201202

REACTIONS (13)
  - Sensory disturbance [Unknown]
  - Inappropriate schedule of product administration [Unknown]
  - Uterine contractions abnormal [Unknown]
  - Disturbance in sexual arousal [Unknown]
  - Malaise [Unknown]
  - Blood pressure increased [Recovered/Resolved]
  - Insomnia [Unknown]
  - Asthenia [Not Recovered/Not Resolved]
  - Blood pressure fluctuation [Recovered/Resolved]
  - Heart rate increased [Unknown]
  - Abdominal rigidity [Unknown]
  - Breast pain [Unknown]
  - Hot flush [Unknown]

NARRATIVE: CASE EVENT DATE: 2020
